FAERS Safety Report 6239239-1 (Version None)
Quarter: 2009Q2

REPORT INFORMATION
  Report Type: 
  Country: None (occurrence: None)
  Receive Date: 20090622
  Receipt Date: 20090616
  Transmission Date: 20091009
  Serious: Yes (Other)
  Sender: FDA-Public Use
  Company Number: US-WYE-H08284709

PATIENT
  Sex: Female

DRUGS (4)
  1. PREMPRO [Suspect]
     Indication: HORMONE REPLACEMENT THERAPY
  2. PREMARIN [Suspect]
     Indication: HORMONE REPLACEMENT THERAPY
  3. ESTRACE [Suspect]
  4. PROVERA [Suspect]
     Indication: HORMONE REPLACEMENT THERAPY

REACTIONS (1)
  - BREAST CANCER METASTATIC [None]
